FAERS Safety Report 4553815-3 (Version None)
Quarter: 2005Q1

REPORT INFORMATION
  Report Type: 
  Country: None (occurrence: None)
  Receive Date: 20050114
  Receipt Date: 20050114
  Transmission Date: 20050727
  Serious: Yes (Other)
  Sender: FDA-Public Use
  Company Number: None

PATIENT
  Age: 58 Year
  Sex: Female
  Weight: 72.6 kg

DRUGS (6)
  1. ZELNORM [Suspect]
     Indication: COLON CANCER
     Dosage: 6MG  BID  ORAL
     Route: 048
     Dates: start: 20041223, end: 20041224
  2. NOVOLOG, SLIDING SCALE [Concomitant]
  3. PANTOPRAZOLE [Concomitant]
  4. MORPHIEN [Concomitant]
  5. ENOXAPARIN SODIUM [Concomitant]
  6. FUROSEMIDE [Concomitant]

REACTIONS (2)
  - DYSPNOEA [None]
  - WHEEZING [None]
